FAERS Safety Report 8139111-6 (Version None)
Quarter: 2012Q1

REPORT INFORMATION
  Report Type: 
  Country: None (occurrence: None)
  Receive Date: 20120215
  Receipt Date: 20120208
  Transmission Date: 20120608
  Serious: Yes (Hospitalization)
  Sender: FDA-Public Use
  Company Number: US-MERCK-1109USA03247

PATIENT
  Age: 19 Year
  Sex: Male

DRUGS (7)
  1. FOSAMAX [Suspect]
     Indication: JUVENILE ARTHRITIS
     Route: 048
     Dates: start: 20010124, end: 20060210
  2. PREDNISONE [Concomitant]
     Route: 048
     Dates: start: 19910101
  3. NAPROXEN [Concomitant]
     Route: 048
     Dates: start: 19910101
  4. FOSAMAX [Suspect]
     Indication: RHEUMATOID ARTHRITIS
     Route: 048
     Dates: start: 20010124, end: 20060210
  5. ENBREL [Concomitant]
     Route: 048
     Dates: start: 20000101
  6. CEPHALEXIN [Concomitant]
     Route: 065
  7. METHOTREXATE [Concomitant]
     Route: 048
     Dates: start: 20040101, end: 20080101

REACTIONS (5)
  - CLAVICLE FRACTURE [None]
  - IMPAIRED HEALING [None]
  - FEMUR FRACTURE [None]
  - OFF LABEL USE [None]
  - DEVICE FAILURE [None]
